FAERS Safety Report 26152423 (Version 2)
Quarter: 2025Q4

REPORT INFORMATION
  Report Type: Report from Study
  Country: EG (occurrence: EG)
  Receive Date: 20251214
  Receipt Date: 20251218
  Transmission Date: 20260118
  Serious: Yes (Life-Threatening, Other)
  Sender: NOVARTIS
  Company Number: EG-002147023-NVSC2025EG189561

PATIENT
  Age: 50 Year
  Sex: Female
  Weight: 68 kg

DRUGS (14)
  1. ENTRESTO [Suspect]
     Active Substance: SACUBITRIL\VALSARTAN
     Indication: Cardiac failure
     Dosage: 100 MG, BID (STOPPED ON THE SAME DAY OF START DATE OF THIS REGIMEN)
     Route: 048
     Dates: start: 2019
  2. ENTRESTO [Suspect]
     Active Substance: SACUBITRIL\VALSARTAN
     Dosage: 0.5 DOSAGE FORM, BID (STOPPED AFTER ONE OR TWO MONTHS FROM STARTING THE OFF LABEL DOSE OF ENTRESTO 1
     Route: 048
  3. ENTRESTO [Suspect]
     Active Substance: SACUBITRIL\VALSARTAN
     Dosage: 100 MG, BID (STARTED AFTER ONE OR TWO MONTHS FROM STARTING THE OFF LABEL DOSE OF ENTRESTO 100MG)
     Route: 048
     Dates: end: 20241206
  4. ENTRESTO [Suspect]
     Active Substance: SACUBITRIL\VALSARTAN
     Dosage: 100 MG, BID (STARTED ON SAME DAY AT THE EVENING)
     Route: 048
     Dates: start: 20241206
  5. FEMARA [Suspect]
     Active Substance: LETROZOLE
     Indication: Breast cancer
     Dosage: 50 MG, OTHER, (USED IT FOR ONE MONTH ONLY)
     Route: 048
  6. NOLVADEX [Concomitant]
     Active Substance: TAMOXIFEN CITRATE
     Indication: Hormone therapy
     Dosage: 2 DOSAGE FORM, QD, TABLET (10 MG, OTHER)
     Route: 048
     Dates: end: 202409
  7. IVABRADINE [Concomitant]
     Active Substance: IVABRADINE
     Indication: Dilated cardiomyopathy
     Dosage: 0.5 DOSAGE FORM OF 5MG, BID
     Route: 048
     Dates: start: 2019
  8. AGGREX [Concomitant]
     Indication: Anticoagulant therapy
     Dosage: 75 MG, OTHER, QD,TABLET, (START DATE: NOV 2019 WITH THE START OF NOLVADEX, (ONCE DAILY, TAKES ASPIRI
     Route: 048
     Dates: start: 201911
  9. ASPIRIN [Concomitant]
     Active Substance: ASPIRIN
     Indication: Anticoagulant therapy
     Dosage: 100 MG, QD, TABLET (OTHER), TABLET
     Route: 048
     Dates: start: 201911
  10. TORSEMIDE [Concomitant]
     Active Substance: TORSEMIDE
     Indication: Polyuria
     Dosage: 0.5 DOSAGE FORM, QD, (100 MG, OTHER)
     Route: 048
     Dates: start: 2018
  11. TORSEMIDE [Concomitant]
     Active Substance: TORSEMIDE
     Dosage: 0.25 DOSAGE FORM, QD
     Route: 048
  12. SPIRONOLACTONE [Concomitant]
     Active Substance: SPIRONOLACTONE
     Indication: Polyuria
     Dosage: 0.5 DOSAGE FORM, QD, (100 MG, OTHER)
     Route: 048
     Dates: start: 2018
  13. BISOPROLOL FUMARATE [Concomitant]
     Active Substance: BISOPROLOL FUMARATE
     Indication: Product used for unknown indication
     Dosage: 2 MG, QD
     Route: 048
     Dates: start: 2018
  14. Dapaglif [Concomitant]
     Indication: Product used for unknown indication
     Dosage: 10 MG, QD, (AS A SYNERGETIC EFFECT FOR ENTRESTO)
     Route: 048
     Dates: start: 2019

REACTIONS (15)
  - Dyspnoea [Recovered/Resolved]
  - Post procedural hypotension [Recovered/Resolved]
  - Post procedural haemorrhage [Recovered/Resolved]
  - Vaginal haemorrhage [Recovered/Resolved]
  - Ejection fraction decreased [Recovered/Resolved]
  - Endometrial thickening [Recovered/Resolved]
  - Uterine leiomyoma [Recovered/Resolved]
  - Insomnia [Not Recovered/Not Resolved]
  - Blood urine present [Recovered/Resolved]
  - Renal impairment [Recovered/Resolved]
  - Hepatic function abnormal [Recovered/Resolved]
  - Pain [Unknown]
  - Fatigue [Unknown]
  - Wrong technique in product usage process [Unknown]
  - Memory impairment [Unknown]

NARRATIVE: CASE EVENT DATE: 20190101
